FAERS Safety Report 9935261 (Version 1)
Quarter: 2014Q1

REPORT INFORMATION
  Report Type: Report from Study
  Country: US (occurrence: US)
  Receive Date: 20140228
  Receipt Date: 20140228
  Transmission Date: 20141002
  Serious: Yes (Other)
  Sender: FDA-Public Use
  Company Number: US-ABBVIE-14P-163-1205058-00

PATIENT
  Age: 45 Year
  Sex: Male

DRUGS (10)
  1. HUMIRA [Suspect]
     Indication: PSORIASIS
  2. HUMIRA [Suspect]
     Dates: start: 201309
  3. OMEGA 3 FISH OIL [Concomitant]
     Indication: PRODUCT USED FOR UNKNOWN INDICATION
  4. BUSPIRONE [Concomitant]
     Indication: ANXIETY
  5. BUSPIRONE [Concomitant]
     Indication: DEPRESSION
  6. MIRTAZAPINE [Concomitant]
     Indication: ANXIETY
  7. MIRTAZAPINE [Concomitant]
     Indication: DEPRESSION
  8. XANAX [Concomitant]
     Indication: ANXIETY
  9. DEPAKOTE [Concomitant]
     Indication: ANXIETY
  10. DEPAKOTE [Concomitant]
     Indication: DEPRESSION

REACTIONS (10)
  - Nephropathy [Recovering/Resolving]
  - Injection site pain [Unknown]
  - Cheilitis [Unknown]
  - Gout [Unknown]
  - Psoriatic arthropathy [Unknown]
  - Oropharyngeal pain [Unknown]
  - Psoriasis [Unknown]
  - Fatigue [Unknown]
  - Ear congestion [Unknown]
  - Pharyngeal oedema [Unknown]
